FAERS Safety Report 6185856-7 (Version None)
Quarter: 2009Q2

REPORT INFORMATION
  Report Type: 
  Country: None (occurrence: None)
  Receive Date: 20090511
  Receipt Date: 20090501
  Transmission Date: 20091009
  Serious: Yes (Hospitalization)
  Sender: FDA-Public Use
  Company Number: A0782961A

PATIENT
  Age: 56 Year
  Sex: Male
  Weight: 181.8 kg

DRUGS (5)
  1. AVANDIA [Suspect]
     Indication: DIABETES MELLITUS
     Dosage: 8MG PER DAY
     Route: 048
     Dates: start: 20000201, end: 20070101
  2. ACTOS [Concomitant]
  3. INSULIN [Concomitant]
  4. PRANDIN [Concomitant]
  5. TOPROL-XL [Concomitant]

REACTIONS (5)
  - CORONARY ARTERY DISEASE [None]
  - MYOCARDIAL INFARCTION [None]
  - RENAL FAILURE [None]
  - RESPIRATORY FAILURE [None]
  - WEIGHT INCREASED [None]
